FAERS Safety Report 7183879-2 (Version None)
Quarter: 2010Q4

REPORT INFORMATION
  Report Type: 
  Country: None (occurrence: None)
  Receive Date: 20101222
  Receipt Date: 20101214
  Transmission Date: 20110411
  Serious: Yes (Hospitalization)
  Sender: FDA-Public Use
  Company Number: FR-JNJFOC-20100102132

PATIENT
  Age: 37 Year
  Sex: Female
  Weight: 68.4 kg

DRUGS (1)
  1. INFLIXIMAB [Suspect]
     Indication: CROHN'S DISEASE
     Route: 042

REACTIONS (2)
  - INTESTINAL RESECTION [None]
  - WEIGHT DECREASED [None]
